FAERS Safety Report 6329223-1 (Version None)
Quarter: 2009Q3

REPORT INFORMATION
  Report Type: 
  Country: None (occurrence: None)
  Receive Date: 20090826
  Receipt Date: 20090815
  Transmission Date: 20100115
  Serious: Yes (Hospitalization)
  Sender: FDA-Public Use
  Company Number: GB-PFIZER INC-2009255412

PATIENT
  Age: 63 Year

DRUGS (1)
  1. CELECOXIB [Suspect]

REACTIONS (2)
  - MONOPLEGIA [None]
  - OSTEOARTHRITIS [None]
